FAERS Safety Report 24563462 (Version 1)
Quarter: 2024Q4

REPORT INFORMATION
  Report Type: Spontaneous
  Country: GB (occurrence: GB)
  Receive Date: 20241030
  Receipt Date: 20241030
  Transmission Date: 20250115
  Serious: Yes (Death, Hospitalization)
  Sender: NOVITIUM PHARMA
  Company Number: GB-NOVITIUMPHARMA-2024GBNVP02422

PATIENT
  Age: 74 Year
  Sex: Male

DRUGS (5)
  1. PYRAZINAMIDE [Suspect]
     Active Substance: PYRAZINAMIDE
     Indication: Atypical mycobacterial infection
  2. ETHAMBUTOL [Concomitant]
     Active Substance: ETHAMBUTOL HYDROCHLORIDE
  3. RIFAMPIN [Concomitant]
     Active Substance: RIFAMPIN
  4. ISONIAZID [Concomitant]
     Active Substance: ISONIAZID
  5. PYRIDOXINE [Concomitant]
     Active Substance: PYRIDOXINE

REACTIONS (4)
  - Treatment noncompliance [Fatal]
  - Vision blurred [Unknown]
  - Nausea [Unknown]
  - Chromaturia [Unknown]
